FAERS Safety Report 5088496-6 (Version None)
Quarter: 2006Q3

REPORT INFORMATION
  Report Type: 
  Country: None (occurrence: None)
  Receive Date: 20060822
  Receipt Date: 20060809
  Transmission Date: 20061208
  Serious: Yes (Disabling, Other)
  Sender: FDA-Public Use
  Company Number: 2006095892

PATIENT
  Age: 81 Year
  Sex: Female
  Weight: 75 kg

DRUGS (10)
  1. LYRICA [Suspect]
     Indication: NEURALGIA
     Dates: start: 20060704, end: 20060708
  2. GABAPENTIN [Concomitant]
  3. AMITRIPTYLINE HCL [Concomitant]
  4. TILCOTIL (TENOXICAM) [Concomitant]
  5. APOREX (DEXTROPROPOXYPHENE HYDROCHLORIDE, PARACETAMOL) [Concomitant]
  6. PRAVASTATIN [Concomitant]
  7. COZAAR [Concomitant]
  8. NICARDIPINE HYDROCHLORIDE [Concomitant]
  9. TROSPIUM CHLORIDE [Concomitant]
  10. OMEPRAZOLE [Concomitant]

REACTIONS (3)
  - ABASIA [None]
  - ASTHENIA [None]
  - DYSSTASIA [None]
